FAERS Safety Report 5491792-1 (Version None)
Quarter: 2007Q4

REPORT INFORMATION
  Report Type: 
  Country: None (occurrence: None)
  Receive Date: 20071018
  Receipt Date: 20071018
  Transmission Date: 20080405
  Serious: Yes (Other)
  Sender: FDA-Public Use
  Company Number: None

PATIENT
  Sex: Male
  Weight: 1.32 kg

DRUGS (2)
  1. CHLORAPREP [Suspect]
     Indication: CENTRAL VENOUS CATHETERISATION
     Dates: start: 20071003, end: 20071005
  2. CHLORAPREP [Suspect]
     Indication: REMOVAL OF INERT MATTER FROM SKIN OR SUBCUTANEOUS TISSUE
     Dates: start: 20071003, end: 20071005

REACTIONS (2)
  - APPLICATION SITE EXCORIATION [None]
  - APPLICATION SITE PUSTULES [None]
